FAERS Safety Report 6415764-5 (Version None)
Quarter: 2009Q4

REPORT INFORMATION
  Report Type: 
  Country: None (occurrence: None)
  Receive Date: 20091027
  Receipt Date: 20091014
  Transmission Date: 20100525
  Serious: Yes (Death, Other)
  Sender: FDA-Public Use
  Company Number: JP-PFIZER INC-2009285018

PATIENT
  Age: 80 Year

DRUGS (7)
  1. HYDROCORTISONE AND HYDROCORTISONE ACETATE AND HYDROCORTISONE CIPIONATE [Suspect]
     Dosage: UNK
     Route: 042
  2. CEFTRIAXONE [Concomitant]
     Route: 042
  3. MINOCYCLINE [Concomitant]
  4. CEFEPIME [Concomitant]
  5. CLINDAMYCIN HYDROCHLORIDE [Concomitant]
  6. VANCOMYCIN [Concomitant]
  7. VORICONAZOLE [Concomitant]

REACTIONS (4)
  - BRONCHOPULMONARY ASPERGILLOSIS [None]
  - GASTROINTESTINAL NECROSIS [None]
  - LARGE INTESTINAL HAEMORRHAGE [None]
  - LARGE INTESTINE PERFORATION [None]
